FAERS Safety Report 8789413 (Version 3)
Quarter: 2014Q1

REPORT INFORMATION
  Report Type: Spontaneous
  Country: US (occurrence: None)
  Receive Date: 20120904
  Receipt Date: 20130923
  Transmission Date: 20141002
  Serious: Yes (Hospitalization)
  Sender: FDA-Public Use
  Company Number: 2012ST000645

PATIENT
  Age: 89 Year
  Sex: Male

DRUGS (1)
  1. MATULANE CAPSULES [Suspect]
     Indication: LEUKAEMIA
     Route: 048
     Dates: start: 2012

REACTIONS (3)
  - Pneumonia aspiration [None]
  - Dysphagia [None]
  - Disease progression [None]
